FAERS Safety Report 8472501-0 (Version None)
Quarter: 2012Q2

REPORT INFORMATION
  Report Type: 
  Country: None (occurrence: None)
  Receive Date: 20120627
  Receipt Date: 20120209
  Transmission Date: 20120825
  Serious: No
  Sender: FDA-Public Use
  Company Number: US-AMGEN-USASP2012001863

PATIENT
  Age: 77 Year
  Sex: Male
  Weight: 73.016 kg

DRUGS (6)
  1. WELCHOL [Concomitant]
  2. FLOMAX [Concomitant]
  3. PROCRIT [Suspect]
     Indication: ANAEMIA OF CHRONIC DISEASE
     Dosage: 40000 IU, Q4WK
     Route: 058
     Dates: start: 20110709, end: 20111130
  4. ASPIRIN [Concomitant]
     Dosage: UNK UNK, QD
  5. ZYRTEC [Concomitant]
  6. LABETALOL HCL [Concomitant]

REACTIONS (2)
  - ANAEMIA [None]
  - DRUG INEFFECTIVE [None]
